FAERS Safety Report 11049429 (Version 1)
Quarter: 2015Q2

REPORT INFORMATION
  Report Type: Spontaneous
  Country: CH (occurrence: CH)
  Receive Date: 20150420
  Receipt Date: 20150420
  Transmission Date: 20150821
  Serious: Yes (Hospitalization)
  Sender: FDA-Public Use
  Company Number: PHHY2015CH042829

PATIENT
  Age: 69 Year
  Sex: Female

DRUGS (3)
  1. FEMARA [Suspect]
     Active Substance: LETROZOLE
     Indication: BREAST CANCER
     Route: 065
     Dates: start: 201010, end: 201210
  2. EXEMESTANE. [Suspect]
     Active Substance: EXEMESTANE
     Indication: BREAST CANCER
     Dosage: UNK
     Route: 065
     Dates: start: 201211, end: 201303
  3. ISCADOR [Suspect]
     Active Substance: VISCUM ALBUM FRUITING TOP
     Route: 065
     Dates: start: 2010, end: 2013

REACTIONS (4)
  - Hyperbilirubinaemia [Unknown]
  - Transaminases increased [Unknown]
  - Hyperammonaemic encephalopathy [Unknown]
  - Hepatic steatosis [Unknown]

NARRATIVE: CASE EVENT DATE: 201210
